FAERS Safety Report 15493605 (Version 2)
Quarter: 2018Q4

REPORT INFORMATION
  Report Type: Report from Study
  Country: JP (occurrence: JP)
  Receive Date: 20181012
  Receipt Date: 20181228
  Transmission Date: 20190205
  Serious: Yes (Hospitalization, Disabling)
  Sender: FDA-Public Use
  Company Number: JP-ASTRAZENECA-2018SE02079

PATIENT
  Age: 83 Year
  Sex: Male

DRUGS (7)
  1. ONGLYZA [Suspect]
     Active Substance: SAXAGLIPTIN HYDROCHLORIDE
     Indication: TYPE 2 DIABETES MELLITUS
     Route: 048
     Dates: start: 20160514, end: 20160808
  2. TRAZENTA [Concomitant]
     Active Substance: LINAGLIPTIN
     Dates: start: 20160422, end: 20160915
  3. ONGLYZA [Suspect]
     Active Substance: SAXAGLIPTIN HYDROCHLORIDE
     Indication: TYPE 2 DIABETES MELLITUS
     Route: 048
     Dates: start: 20140930, end: 20160421
  4. ONGLYZA [Suspect]
     Active Substance: SAXAGLIPTIN HYDROCHLORIDE
     Indication: TYPE 2 DIABETES MELLITUS
     Route: 048
     Dates: start: 20160916, end: 20170119
  5. CALTAN [Suspect]
     Active Substance: CALCIUM CARBONATE
     Indication: HYPERPHOSPHATAEMIA
     Route: 048
  6. GLUCOBAY [Concomitant]
     Active Substance: ACARBOSE
     Dates: start: 20160708
  7. ACARBOSE. [Concomitant]
     Active Substance: ACARBOSE
     Dates: start: 20160808, end: 20160915

REACTIONS (4)
  - Cardiac failure congestive [Recovering/Resolving]
  - Hypoglycaemia [Unknown]
  - Gastrointestinal necrosis [Recovered/Resolved with Sequelae]
  - Intestinal ischaemia [Recovered/Resolved with Sequelae]

NARRATIVE: CASE EVENT DATE: 20160419
